FAERS Safety Report 20916532 (Version 6)
Quarter: 2022Q4

REPORT INFORMATION
  Report Type: Report from Study
  Country: US (occurrence: None)
  Receive Date: 20220605
  Receipt Date: 20221122
  Transmission Date: 20230113
  Serious: Yes (Hospitalization)
  Sender: FDA-Public Use
  Company Number: US-ROCHE-3105828

PATIENT
  Age: 68 Year
  Sex: Male
  Weight: 83 kg

DRUGS (7)
  1. ATEZOLIZUMAB [Suspect]
     Active Substance: ATEZOLIZUMAB
     Indication: Salivary gland cancer
     Dosage: LAST DOSE OF ATEZOLIZUMAB PRIOR TO SAE ONSET ON 27/APR/2022, 17/MAY/2022, 25/MAY/2022.
     Route: 042
     Dates: start: 20220427
  2. BUPARLISIB [Suspect]
     Active Substance: BUPARLISIB
     Indication: Salivary gland cancer
     Dosage: THE LAST DOSE OF AN2025 PRIOR TO SAE ONSET WHICH WAS ALSO THE LAST DOSE IN THE STUDY WAS ADMINISTERE
     Route: 048
     Dates: start: 20220427, end: 20220517
  3. CHLORPROMAZINE [Concomitant]
     Active Substance: CHLORPROMAZINE
     Route: 048
     Dates: start: 202205
  4. INSULIN NOS [Concomitant]
     Active Substance: INSULIN NOS
     Dates: start: 20220518
  5. ZOSYN [Concomitant]
     Active Substance: PIPERACILLIN SODIUM\TAZOBACTAM SODIUM
     Dates: start: 202205, end: 202205
  6. GLIMEPIRIDE [Concomitant]
     Active Substance: GLIMEPIRIDE
     Route: 048
     Dates: start: 202205
  7. METFORMIN [Concomitant]
     Active Substance: METFORMIN HYDROCHLORIDE
     Route: 048
     Dates: start: 202205

REACTIONS (2)
  - Type 2 diabetes mellitus [Not Recovered/Not Resolved]
  - Hypoglycaemia [Recovered/Resolved]

NARRATIVE: CASE EVENT DATE: 20220518
